FAERS Safety Report 11573612 (Version 2)
Quarter: 2015Q4

REPORT INFORMATION
  Report Type: Spontaneous
  Country: US (occurrence: None)
  Receive Date: 20150929
  Receipt Date: 20151014
  Transmission Date: 20160304
  Serious: Yes (Death, Other)
  Sender: FDA-Public Use
  Company Number: US-MDT-ADR-2015-01868

PATIENT
  Age: 73 Year
  Sex: Female

DRUGS (1)
  1. BACLOFEN INTRATHECAL 500MCG/ML [Suspect]
     Active Substance: BACLOFEN
     Indication: MUSCLE SPASTICITY
     Dosage: 109.91 MCG/DAY

REACTIONS (1)
  - Death [None]
